FAERS Safety Report 7131373-7 (Version None)
Quarter: 2010Q4

REPORT INFORMATION
  Report Type: 
  Country: None (occurrence: None)
  Receive Date: 20101201
  Receipt Date: 20101125
  Transmission Date: 20110411
  Serious: Yes (Life-Threatening)
  Sender: FDA-Public Use
  Company Number: GB-PFIZER INC-2010158178

PATIENT
  Age: 46 Year
  Sex: Male

DRUGS (7)
  1. ATORVASTATIN CALCIUM [Suspect]
     Indication: CHEST PAIN
     Dosage: UNK
     Route: 048
     Dates: start: 20100701, end: 20101120
  2. ACETYLSALICYLIC ACID [Concomitant]
  3. BISOPROLOL FUMARATE [Concomitant]
  4. CITALOPRAM [Concomitant]
  5. IBUPROFEN [Concomitant]
  6. LISINOPRIL [Concomitant]
  7. OMEPRAZOLE [Concomitant]

REACTIONS (9)
  - CHEST PAIN [None]
  - DECREASED APPETITE [None]
  - DIARRHOEA [None]
  - DYSPNOEA [None]
  - MYALGIA [None]
  - RENAL FAILURE [None]
  - RHABDOMYOLYSIS [None]
  - URINE COLOUR ABNORMAL [None]
  - VOMITING [None]
